FAERS Safety Report 5072927-1 (Version None)
Quarter: 2006Q3

REPORT INFORMATION
  Report Type: 
  Country: None (occurrence: None)
  Receive Date: 20060802
  Receipt Date: 20060711
  Transmission Date: 20061208
  Serious: Yes (Death, Other)
  Sender: FDA-Public Use
  Company Number: JP200607001961

PATIENT
  Age: 46 Year
  Sex: Female

DRUGS (6)
  1. ZYPREXA [Suspect]
     Indication: SCHIZOPHRENIA
     Dosage: ORAL
     Route: 048
  2. ZOTEPINE (ZOTEPINE) [Concomitant]
  3. HALOPERIDOL [Concomitant]
  4. BIPERIDEN (BIPERIDEN) [Concomitant]
  5. BROMAZEPAM (BROMAZEPAM) [Concomitant]
  6. FLUNITRAZEPAM (FLUNITRAZEPAM) [Concomitant]

REACTIONS (11)
  - ACUTE RESPIRATORY FAILURE [None]
  - CARDIOPULMONARY FAILURE [None]
  - HEPATIC CONGESTION [None]
  - HYPOPNOEA [None]
  - LIVER DISORDER [None]
  - PULMONARY CONGESTION [None]
  - PULMONARY OEDEMA [None]
  - SHOCK [None]
  - SUDDEN DEATH [None]
  - THERAPEUTIC AGENT TOXICITY [None]
  - VOMITING [None]
